FAERS Safety Report 5121280-3 (Version None)
Quarter: 2006Q4

REPORT INFORMATION
  Report Type: 
  Country: None (occurrence: None)
  Receive Date: 20061002
  Receipt Date: 20060921
  Transmission Date: 20070319
  Serious: No
  Sender: FDA-Public Use
  Company Number: 06H-163-0308517-00

PATIENT
  Sex: Female

DRUGS (1)
  1. SODIUM CHLORIDE [Suspect]
     Dosage: 0.5 ML, ONCE, INTRAMUSCULAR
     Route: 030
     Dates: start: 20060620, end: 20060620

REACTIONS (6)
  - CHEST PAIN [None]
  - DYSPNOEA [None]
  - INJECTION SITE IRRITATION [None]
  - MUSCLE RIGIDITY [None]
  - NAUSEA [None]
  - VOMITING [None]
